FAERS Safety Report 7142109-8 (Version None)
Quarter: 2010Q4

REPORT INFORMATION
  Report Type: 
  Country: None (occurrence: None)
  Receive Date: 20101112
  Receipt Date: 20100909
  Transmission Date: 20110411
  Serious: No
  Sender: FDA-Public Use
  Company Number: 1000016181

PATIENT
  Sex: Female

DRUGS (2)
  1. SAVELLA [Suspect]
     Dosage: TAPERING DOSE
     Dates: start: 20100905
  2. SAVELLA [Suspect]
     Dosage: TAPERING DOSE
     Dates: start: 20100909

REACTIONS (1)
  - ALOPECIA [None]
